FAERS Safety Report 10775562 (Version 3)
Quarter: 2015Q1

REPORT INFORMATION
  Report Type: Spontaneous
  Country: JP (occurrence: None)
  Receive Date: 20150205
  Receipt Date: 20150306
  Transmission Date: 20150721
  Serious: Yes (Hospitalization, Other)
  Sender: FDA-Public Use
  Company Number: JP2015JPN012085

PATIENT
  Age: 53 Year
  Sex: Male

DRUGS (6)
  1. TRUVADA [Concomitant]
     Active Substance: EMTRICITABINE\TENOFOVIR DISOPROXIL FUMARATE
  2. PYRETHIA (PROMETHAZINE) [Concomitant]
  3. TIVICAY [Suspect]
     Active Substance: DOLUTEGRAVIR SODIUM
     Indication: HIV INFECTION
     Route: 048
     Dates: start: 20141025, end: 20141227
  4. WYPAX (LORAZEPAM) [Concomitant]
  5. LUNESTA [Concomitant]
     Active Substance: ESZOPICLONE
  6. AMOBAN (ZOPICLONE) [Concomitant]

REACTIONS (2)
  - Hepatitis acute [None]
  - Hepatitis [None]

NARRATIVE: CASE EVENT DATE: 20141227
